FAERS Safety Report 16597512 (Version 1)
Quarter: 2019Q3

REPORT INFORMATION
  Report Type: Spontaneous
  Country: FR (occurrence: FR)
  Receive Date: 20190719
  Receipt Date: 20190719
  Transmission Date: 20191004
  Serious: Yes (Hospitalization)
  Sender: FDA-Public Use
  Company Number: FR-SA-2019SA192465

PATIENT
  Age: 46 Year
  Sex: Female
  Weight: 113 kg

DRUGS (11)
  1. COVERAM [Concomitant]
     Active Substance: AMLODIPINE\PERINDOPRIL
     Route: 048
  2. RIFADINE [Suspect]
     Active Substance: RIFAMPIN
     Dosage: 600 MG, 1X
     Route: 048
     Dates: start: 20190329, end: 20190329
  3. RIFADINE [Suspect]
     Active Substance: RIFAMPIN
     Dosage: 900 MG, 1X
     Route: 048
     Dates: start: 20190430, end: 20190430
  4. CLINDAMYCIN HYDROCHLORIDE. [Suspect]
     Active Substance: CLINDAMYCIN HYDROCHLORIDE
     Indication: PSEUDOMENINGOCELE
     Dosage: 900 MG IN THE MORNING-600MG TO MID-900 MG IN THE EVENING
     Route: 048
     Dates: start: 20190415, end: 20190421
  5. LAMALINE [ATROPA BELLADONNA EXTRACT;CAFFEINE;PAPAVER SOMNIFERUM TINCTU [Concomitant]
     Active Substance: ACETAMINOPHEN\BELLADONNA LEAF\CAFFEINE\OPIUM
     Dosage: 1 DF, Q6H
     Route: 048
  6. ECONAZOLE NITRATE. [Concomitant]
     Active Substance: ECONAZOLE NITRATE
     Route: 003
  7. RIFADINE [Suspect]
     Active Substance: RIFAMPIN
     Dosage: 600 MG, 1X
     Route: 048
     Dates: start: 20190421, end: 20190421
  8. CEFOXITIN [Concomitant]
     Active Substance: CEFOXITIN SODIUM
     Indication: PSEUDOMENINGOCELE
     Dosage: 6 G, QD
     Route: 048
     Dates: start: 20190412, end: 20190503
  9. RIFADINE [Suspect]
     Active Substance: RIFAMPIN
     Indication: PSEUDOMENINGOCELE
     Dosage: 900 MG, 1X
     Route: 048
     Dates: start: 20190317
  10. DOLIPRANE [Concomitant]
     Active Substance: ACETAMINOPHEN
     Dosage: 6 DF
     Route: 048
  11. DESLORATADINE. [Concomitant]
     Active Substance: DESLORATADINE
     Dosage: 5 MG
     Route: 048

REACTIONS (2)
  - Fungal infection [Recovering/Resolving]
  - Diarrhoea [Recovered/Resolved]

NARRATIVE: CASE EVENT DATE: 20190409
